FAERS Safety Report 7280748-4 (Version None)
Quarter: 2011Q1

REPORT INFORMATION
  Report Type: 
  Country: None (occurrence: None)
  Receive Date: 20110203
  Receipt Date: 20110203
  Transmission Date: 20110831
  Serious: Yes (Other)
  Sender: FDA-Public Use
  Company Number: None

PATIENT
  Age: 70 Year
  Sex: Male
  Weight: 79.3795 kg

DRUGS (1)
  1. LEVETIRACETAM [Suspect]
     Indication: STATUS EPILEPTICUS
     Dosage: 500MG TWICE DAILY PO
     Route: 048
     Dates: start: 20110124, end: 20110201

REACTIONS (1)
  - RASH [None]
